FAERS Safety Report 6993733-4 (Version None)
Quarter: 2010Q3

REPORT INFORMATION
  Report Type: 
  Country: None (occurrence: None)
  Receive Date: 20100917
  Receipt Date: 20100602
  Transmission Date: 20110219
  Serious: No
  Sender: FDA-Public Use
  Company Number: US-ASTRAZENECA-2010SE28738

PATIENT
  Age: 19316 Day
  Sex: Female

DRUGS (4)
  1. SEROQUEL [Suspect]
     Route: 048
     Dates: start: 20031110
  2. EFFEXOR XR [Concomitant]
     Dates: start: 20030815
  3. OXYCONTIN [Concomitant]
     Indication: BACK PAIN
     Dosage: 20 MG TO 40 MG
     Dates: start: 20040123
  4. AMITRIPTYLINE HCL [Concomitant]
     Dates: start: 20031110

REACTIONS (3)
  - CYSTOCELE [None]
  - HYPERTENSION [None]
  - RECTOCELE [None]
